FAERS Safety Report 8495780 (Version 3)
Quarter: 2012Q4

REPORT INFORMATION
  Report Type: Report from Study
  Country: US (occurrence: None)
  Receive Date: 20120328
  Receipt Date: 20121015
  Transmission Date: 20130627
  Serious: Yes (Hospitalization)
  Sender: FDA-Public Use
  Company Number: AUR-APL-2012-01492

PATIENT
  Age: 59 Year
  Sex: Male

DRUGS (8)
  1. CARVEDILOL [Suspect]
     Indication: PRODUCT USED FOR UNKNOWN INDICATION
  2. TORSEMIDE [Suspect]
     Indication: PRODUCT USED FOR UNKNOWN INDICATION
  3. SPIRONOLACTONE [Suspect]
     Indication: PRODUCT USED FOR UNKNOWN INDICATION
     Dates: start: 20110505, end: 20110509
  4. FUROSEMIDE (FUROSEMIDE) [Suspect]
     Indication: TYPE 2 DIABETES MELLITUS
  5. BLINDED THERAPY [Suspect]
     Indication: TYPE 2 DIABETES MELLITUS
     Dates: start: 20110325, end: 20110708
  6. BLINDED THERAPY [Suspect]
     Indication: TYPE 2 DIABETES MELLITUS
     Dates: start: 20110927, end: 20111206
  7. EZETIMIBE (EZETIMIBE) [Concomitant]
     Indication: PRODUCT USED FOR UNKNOWN INDICATION
  8. ASPIRIN (ACETYLSALICYLIC ACID) [Concomitant]
     Indication: TYPE 2 DIABETES MELLITUS
     Dates: start: 20110325, end: 20110708

REACTIONS (16)
  - Aortic valve sclerosis [None]
  - Hepatic steatosis [None]
  - Hypovolaemia [None]
  - Renal failure acute [None]
  - Irritable bowel syndrome [None]
  - Infection [None]
  - Hypotension [None]
  - Condition aggravated [None]
  - Vision blurred [None]
  - Dilatation ventricular [None]
  - Aortic valve incompetence [None]
  - Hypovolaemia [None]
  - Cardiac failure congestive [None]
  - Diarrhoea [None]
  - Vomiting [None]
  - Colon adenoma [None]
